FAERS Safety Report 14408920 (Version 1)
Quarter: 2018Q1

REPORT INFORMATION
  Report Type: Report from Study
  Country: None (occurrence: US)
  Receive Date: 20180119
  Receipt Date: 20180119
  Transmission Date: 20180509
  Serious: Yes (Other)
  Sender: FDA-Public Use
  Company Number: US-ABBVIE-18P-163-2223586-00

PATIENT
  Sex: Female

DRUGS (1)
  1. SYNTHROID [Suspect]
     Active Substance: LEVOTHYROXINE SODIUM
     Indication: HYPOTHYROIDISM
     Dosage: ONE TABLET DAILY FOR 6 DAYS AND 1 1/2 TABLET ON SUNDAY THE 7TH DAY
     Route: 048

REACTIONS (1)
  - Neoplasm malignant [Not Recovered/Not Resolved]
